FAERS Safety Report 19918761 (Version 1)
Quarter: 2021Q4

REPORT INFORMATION
  Report Type: Spontaneous
  Country: GB (occurrence: GB)
  Receive Date: 20211005
  Receipt Date: 20211005
  Transmission Date: 20220303
  Serious: Yes (Life-Threatening, Hospitalization, Other)
  Sender: FDA-Public Use
  Company Number: GB-IPCA LABORATORIES LIMITED-IPC-2021-GB-001710

PATIENT

DRUGS (7)
  1. WARFARIN SODIUM [Interacting]
     Active Substance: WARFARIN SODIUM
     Indication: Atrial fibrillation
     Dosage: UNK
     Route: 065
  2. MICONAZOLE [Interacting]
     Active Substance: MICONAZOLE
     Indication: Oral candidiasis
     Dosage: 24 MILLIGRAM PER MILLILITRE
     Route: 061
  3. BISOPROLOL [Concomitant]
     Active Substance: BISOPROLOL
     Indication: Hypertension
     Dosage: UNK
     Route: 065
  4. FUROSEMIDE [Concomitant]
     Active Substance: FUROSEMIDE
     Indication: Hypertension
     Dosage: UNK
     Route: 065
  5. RAMIPRIL [Concomitant]
     Active Substance: RAMIPRIL
     Indication: Hypertension
     Dosage: UNK
     Route: 065
  6. SIMVASTATIN [Concomitant]
     Active Substance: SIMVASTATIN
     Indication: Atrial fibrillation
     Dosage: UNK
     Route: 065
  7. PENICILLIN- V [Concomitant]
     Indication: Pharyngitis
     Dosage: UNK
     Route: 065

REACTIONS (5)
  - Pharyngeal haematoma [Recovered/Resolved]
  - Obstructive airways disorder [Recovered/Resolved]
  - Drug interaction [Unknown]
  - Coagulopathy [Recovered/Resolved]
  - International normalised ratio increased [Recovered/Resolved]
